FAERS Safety Report 21262011 (Version 1)
Quarter: 2022Q3

REPORT INFORMATION
  Report Type: Report from Study
  Country: US (occurrence: US)
  Receive Date: 20220827
  Receipt Date: 20220827
  Transmission Date: 20221026
  Serious: Yes (Hospitalization)
  Sender: FDA-Public Use
  Company Number: US-AMGEN-USACT2022144939

PATIENT
  Age: 60 Year
  Sex: Female
  Weight: 114.3 kg

DRUGS (2)
  1. CARFILZOMIB [Suspect]
     Active Substance: CARFILZOMIB
     Indication: Plasma cell myeloma
     Dosage: 70 MILLIGRAM/KILOGRAM, PER CHEMO REGIM
     Route: 042
     Dates: start: 20220601
  2. ISATUXIMAB [Suspect]
     Active Substance: ISATUXIMAB
     Indication: Plasma cell myeloma
     Dosage: 10 MILLIGRAM/KILOGRAM, PER CHEMO REGIM
     Route: 042
     Dates: start: 20220601

REACTIONS (3)
  - Diabetic ketoacidosis [Unknown]
  - Acute respiratory failure [Unknown]
  - Acute kidney injury [Unknown]

NARRATIVE: CASE EVENT DATE: 20220809
